FAERS Safety Report 14333200 (Version 2)
Quarter: 2018Q1

REPORT INFORMATION
  Report Type: Report from Study
  Country: JP (occurrence: JP)
  Receive Date: 20171228
  Receipt Date: 20180130
  Transmission Date: 20180509
  Serious: Yes (Hospitalization)
  Sender: FDA-Public Use
  Company Number: JP-PFIZER INC-2017170838

PATIENT
  Age: 40 Year
  Sex: Female
  Weight: 40 kg

DRUGS (16)
  1. XELJANZ [Suspect]
     Active Substance: TOFACITINIB CITRATE
     Indication: RHEUMATOID ARTHRITIS
     Dosage: 5 MG, 2X/DAY
     Route: 048
     Dates: start: 20151105, end: 20161120
  2. NEXIUM [Concomitant]
     Active Substance: ESOMEPRAZOLE MAGNESIUM
     Dosage: UNK
     Route: 048
  3. SIGMART [Concomitant]
     Active Substance: NICORANDIL
     Dosage: UNK
     Route: 048
  4. PLAVIX [Concomitant]
     Active Substance: CLOPIDOGREL BISULFATE
     Dosage: UNK
     Route: 048
  5. XELJANZ [Suspect]
     Active Substance: TOFACITINIB CITRATE
     Dosage: 10 MG, 2X/DAY
     Dates: start: 20170214
  6. ISCOTIN [Concomitant]
     Active Substance: ISONIAZID
     Indication: ANTIBIOTIC PROPHYLAXIS
     Dosage: UNK
     Dates: start: 20100922, end: 20120801
  7. PREDNISOLONE. [Concomitant]
     Active Substance: PREDNISOLONE
     Dosage: 7.5 MG, DAILY
     Dates: end: 20160828
  8. PREDNISOLONE. [Concomitant]
     Active Substance: PREDNISOLONE
     Dosage: 2.5 MG, DAILY
     Dates: start: 20160829
  9. WARFARIN [Concomitant]
     Active Substance: WARFARIN
     Dosage: UNK
     Route: 048
  10. MEVALOTIN [Concomitant]
     Active Substance: PRAVASTATIN SODIUM
     Dosage: UNK
     Route: 048
  11. ISCOTIN [Concomitant]
     Active Substance: ISONIAZID
     Dosage: UNK
     Dates: start: 20151105, end: 20161120
  12. HYPEN [Concomitant]
     Active Substance: ETODOLAC
     Dosage: UNK
     Route: 048
  13. CINAL [Concomitant]
     Active Substance: ASCORBIC ACID\CALCIUM PANTOTHENATE
     Dosage: UNK
     Route: 048
  14. TANATRIL [Concomitant]
     Active Substance: IMIDAPRIL
     Dosage: UNK
     Route: 048
  15. MUCOSTA [Concomitant]
     Active Substance: REBAMIPIDE
     Dosage: UNK
     Route: 048
  16. XELJANZ [Suspect]
     Active Substance: TOFACITINIB CITRATE
     Dosage: 5 MG, 1X/DAY
     Route: 048
     Dates: start: 20170124, end: 20170213

REACTIONS (5)
  - Rheumatoid arthritis [Recovered/Resolved]
  - Mediastinal abscess [Recovered/Resolved]
  - Arthritis bacterial [Recovered/Resolved]
  - Mediastinal abscess [Recovered/Resolved]
  - Angina unstable [Recovering/Resolving]

NARRATIVE: CASE EVENT DATE: 20160726
